FAERS Safety Report 25574998 (Version 1)
Quarter: 2025Q3

REPORT INFORMATION
  Report Type: Spontaneous
  Country: US (occurrence: US)
  Receive Date: 20250718
  Receipt Date: 20250718
  Transmission Date: 20251021
  Serious: No
  Sender: ELI LILLY AND COMPANY
  Company Number: US-ELI_LILLY_AND_COMPANY-US202507010311

PATIENT
  Age: 42 Year
  Sex: Female

DRUGS (1)
  1. HUMALOG [Suspect]
     Active Substance: INSULIN LISPRO
     Indication: Product used for unknown indication
     Route: 065

REACTIONS (6)
  - Dizziness [Unknown]
  - Nervousness [Unknown]
  - Speech disorder [Unknown]
  - Vomiting [Unknown]
  - Blood glucose increased [Unknown]
  - Blood glucose decreased [Unknown]
